FAERS Safety Report 21526394 (Version 1)
Quarter: 2022Q4

REPORT INFORMATION
  Report Type: Spontaneous
  Country: US (occurrence: US)
  Receive Date: 20221031
  Receipt Date: 20221031
  Transmission Date: 20230113
  Serious: No
  Sender: FDA-Public Use
  Company Number: US-UCBSA-2022015711

PATIENT
  Age: 13 Year
  Sex: Male
  Weight: 32 kg

DRUGS (1)
  1. VIMPAT [Suspect]
     Active Substance: LACOSAMIDE
     Indication: Product used for unknown indication
     Dosage: 200 MIILLIGRAM A DAY

REACTIONS (2)
  - Product prescribing issue [Unknown]
  - Prescribed overdose [Unknown]
